FAERS Safety Report 24962019 (Version 1)
Quarter: 2025Q1

REPORT INFORMATION
  Report Type: Spontaneous
  Country: DE (occurrence: DE)
  Receive Date: 20250212
  Receipt Date: 20250212
  Transmission Date: 20250409
  Serious: Yes (Other)
  Sender: PFIZER
  Company Number: DE-ELI_LILLY_AND_COMPANY-DE202501006396

PATIENT
  Sex: Female

DRUGS (3)
  1. METHOTREXATE SODIUM [Suspect]
     Active Substance: METHOTREXATE SODIUM
     Indication: Rheumatic disorder
     Dosage: 7.5 MG, WEEKLY (1/W)
     Route: 065
  2. EMGALITY [Suspect]
     Active Substance: GALCANEZUMAB-GNLM
     Indication: Migraine
     Route: 065
     Dates: start: 202310
  3. IMRALDI [Suspect]
     Active Substance: ADALIMUMAB
     Indication: Rheumatic disorder
     Route: 058

REACTIONS (1)
  - Weight increased [Unknown]
